FAERS Safety Report 13655515 (Version 2)
Quarter: 2017Q3

REPORT INFORMATION
  Report Type: Spontaneous
  Country: US (occurrence: US)
  Receive Date: 20170615
  Receipt Date: 20170912
  Transmission Date: 20171127
  Serious: No
  Sender: FDA-Public Use
  Company Number: US-PFIZER INC-2017256470

PATIENT
  Age: 43 Year
  Sex: Female
  Weight: 83.45 kg

DRUGS (4)
  1. CLONAZEPAM. [Suspect]
     Active Substance: CLONAZEPAM
     Indication: CHEST PAIN
  2. CLONAZEPAM. [Suspect]
     Active Substance: CLONAZEPAM
     Indication: ANXIETY
  3. ALPRAZOLAM. [Suspect]
     Active Substance: ALPRAZOLAM
     Indication: PANIC ATTACK
     Dosage: 1 MG, AS NEEDED (STARTED 6 YEARS AGO)
     Route: 048
  4. CLONAZEPAM. [Suspect]
     Active Substance: CLONAZEPAM
     Indication: PANIC DISORDER
     Dosage: 1 MG, ONE IN MORNING AND ONE AT BEDTIME
     Route: 048
     Dates: start: 201607

REACTIONS (7)
  - Anxiety [Unknown]
  - Terminal insomnia [Unknown]
  - Night sweats [Unknown]
  - Irritability [Unknown]
  - Insomnia [Unknown]
  - Muscle twitching [Unknown]
  - Musculoskeletal pain [Unknown]
